FAERS Safety Report 8470569-9 (Version None)
Quarter: 2012Q2

REPORT INFORMATION
  Report Type: 
  Country: None (occurrence: None)
  Receive Date: 20120627
  Receipt Date: 20120621
  Transmission Date: 20120825
  Serious: Yes (Other)
  Sender: FDA-Public Use
  Company Number: PHHY2012BR053888

PATIENT
  Sex: Male

DRUGS (2)
  1. FORMOTEROL FUMARATE [Suspect]
     Dosage: UNK UKN, UNK
  2. BUDESONIDE [Suspect]
     Dosage: UNK UKN, UNK

REACTIONS (2)
  - THYMOMA [None]
  - LUNG NEOPLASM MALIGNANT [None]
